FAERS Safety Report 8986474 (Version 1)
Quarter: 2012Q4

REPORT INFORMATION
  Report Type: 
  Country: IT (occurrence: IT)
  Receive Date: 20121227
  Receipt Date: 20121227
  Transmission Date: 20130627
  Serious: Yes (Hospitalization)
  Sender: FDA-Public Use
  Company Number: PHHY2012IT119661

PATIENT
  Sex: Male

DRUGS (5)
  1. FLUOXETINE HYDROCHLORIDE [Suspect]
     Indication: ANXIETY
     Dosage: 20 mg, UNK
     Route: 048
     Dates: start: 20121213, end: 20121213
  2. TAVOR [Suspect]
     Indication: ANXIETY
     Dosage: 8 DF, UNK
     Route: 048
     Dates: start: 20121213, end: 20121213
  3. CARDIOASPIRIN [Concomitant]
     Dosage: 100 mg, UNK
     Route: 048
  4. ONCO CARBIDE [Concomitant]
     Route: 048
  5. GLICLAZIDE [Concomitant]
     Route: 048

REACTIONS (3)
  - Syncope [Recovered/Resolved]
  - Loss of consciousness [Recovered/Resolved]
  - Drug abuse [Recovered/Resolved]
